FAERS Safety Report 22032030 (Version 1)
Quarter: 2023Q1

REPORT INFORMATION
  Report Type: Spontaneous
  Country: US (occurrence: None)
  Receive Date: 20230224
  Receipt Date: 20230224
  Transmission Date: 20230418
  Serious: Yes (Other)
  Sender: FDA-Public Use
  Company Number: US-Hikma Pharmaceuticals USA Inc.-US-H14001-23-00281

PATIENT
  Age: 52 Year
  Sex: Female

DRUGS (4)
  1. IFOSFAMIDE [Suspect]
     Active Substance: IFOSFAMIDE
     Indication: Salvage therapy
     Dosage: UNKNOWN
     Route: 065
  2. RITUXIMAB [Concomitant]
     Active Substance: RITUXIMAB
     Indication: Salvage therapy
     Dosage: UNKNOWN
     Route: 065
  3. CARBOPLATIN [Concomitant]
     Active Substance: CARBOPLATIN
     Indication: Salvage therapy
     Dosage: UNKNOWN
     Route: 065
  4. ETOPOSIDE [Concomitant]
     Active Substance: ETOPOSIDE
     Indication: Salvage therapy
     Dosage: UNKNOWN
     Route: 065

REACTIONS (5)
  - Encephalopathy [Recovered/Resolved]
  - Renal failure [Unknown]
  - Toxicity to various agents [Unknown]
  - End stage renal disease [Unknown]
  - Device dependence [Not Recovered/Not Resolved]
